FAERS Safety Report 16175879 (Version 4)
Quarter: 2020Q2

REPORT INFORMATION
  Report Type: Spontaneous
  Country: JP (occurrence: JP)
  Receive Date: 20190409
  Receipt Date: 20200529
  Transmission Date: 20200713
  Serious: Yes (Death, Hospitalization, Other)
  Sender: FDA-Public Use
  Company Number: JP-JNJFOC-20190411127

PATIENT
  Age: 70 Year
  Sex: Male
  Weight: 73 kg

DRUGS (5)
  1. ZYTIGA [Suspect]
     Active Substance: ABIRATERONE ACETATE
     Indication: PROSTATE CANCER
  2. PREDONINE [Concomitant]
     Active Substance: PREDNISOLONE
     Indication: PROSTATE CANCER
     Route: 048
     Dates: start: 20190307
  3. SELARA [Concomitant]
     Active Substance: EPLERENONE
     Route: 048
     Dates: start: 20190320
  4. GONAX [Concomitant]
     Active Substance: DEGARELIX
     Route: 058
     Dates: start: 20190207
  5. ZYTIGA [Suspect]
     Active Substance: ABIRATERONE ACETATE
     Indication: PROSTATE CANCER
     Route: 048
     Dates: start: 20190307

REACTIONS (6)
  - Metastases to bone [Unknown]
  - Off label use [Unknown]
  - Product use in unapproved indication [Unknown]
  - Acute hepatic failure [Fatal]
  - Metastases to lymph nodes [Unknown]
  - Septic shock [Fatal]

NARRATIVE: CASE EVENT DATE: 20190403
